FAERS Safety Report 17202944 (Version 4)
Quarter: 2023Q4

REPORT INFORMATION
  Report Type: Spontaneous
  Country: US (occurrence: US)
  Receive Date: 20191226
  Receipt Date: 20231129
  Transmission Date: 20240110
  Serious: No
  Sender: FDA-Public Use
  Company Number: US-PFIZER INC-2019554423

PATIENT
  Age: 71 Year
  Sex: Female
  Weight: 65.77 kg

DRUGS (2)
  1. PREMARIN [Suspect]
     Active Substance: ESTROGENS, CONJUGATED
     Dosage: 0.625 MG, 1X/DAY
     Route: 048
  2. HYDROCHLOROTHIAZIDE [Concomitant]
     Active Substance: HYDROCHLOROTHIAZIDE
     Indication: Diuretic therapy
     Dosage: UNK

REACTIONS (12)
  - Reading disorder [Unknown]
  - Malaise [Unknown]
  - Illness [Unknown]
  - Thinking abnormal [Unknown]
  - Nasopharyngitis [Unknown]
  - Insomnia [Unknown]
  - Abnormal dreams [Unknown]
  - Anxiety [Unknown]
  - Depression [Unknown]
  - Feeling abnormal [Unknown]
  - Hot flush [Unknown]
  - Vitamin D abnormal [Unknown]

NARRATIVE: CASE EVENT DATE: 20211201
